FAERS Safety Report 10037513 (Version 1)
Quarter: 2014Q1

REPORT INFORMATION
  Report Type: Spontaneous
  Country: US (occurrence: None)
  Receive Date: 20140324
  Receipt Date: 20140324
  Transmission Date: 20141002
  Serious: Yes (Life-Threatening)
  Sender: FDA-Public Use
  Company Number: 001687893A

PATIENT
  Age: 16 Year
  Sex: Female

DRUGS (2)
  1. X-OUT WASH-IN TREATMENT [Suspect]
     Indication: ACNE
     Dosage: ONCE DERMAL
     Dates: start: 20140217
  2. FLINSTONE VITAMIN 1 QD [Concomitant]

REACTIONS (1)
  - Anaphylactic reaction [None]
